FAERS Safety Report 8596376-4 (Version None)
Quarter: 2012Q3

REPORT INFORMATION
  Report Type: 
  Country: None (occurrence: None)
  Receive Date: 20120815
  Receipt Date: 20120806
  Transmission Date: 20120928
  Serious: No
  Sender: FDA-Public Use
  Company Number: US-ASTRAZENECA-2011SE04678

PATIENT
  Age: 71 Year
  Sex: Female
  Weight: 85.3 kg

DRUGS (2)
  1. NEXIUM [Suspect]
     Dosage: TAKES THE MEDICATION TWICE DAILY INSTEAD OF ONCE PER DAY
     Route: 048
  2. NEXIUM [Suspect]
     Route: 048

REACTIONS (7)
  - DIABETES MELLITUS [None]
  - DRUG DOSE OMISSION [None]
  - APHAGIA [None]
  - GASTRIC DISORDER [None]
  - GASTROOESOPHAGEAL REFLUX DISEASE [None]
  - DYSPEPSIA [None]
  - OFF LABEL USE [None]
